FAERS Safety Report 10071508 (Version 1)
Quarter: 2014Q2

REPORT INFORMATION
  Report Type: Report from Study
  Country: US (occurrence: US)
  Receive Date: 20140410
  Receipt Date: 20140410
  Transmission Date: 20141212
  Serious: Yes (Other)
  Sender: FDA-Public Use
  Company Number: US-ABBVIE-14P-163-1219719-00

PATIENT
  Age: 52 Year
  Sex: Female

DRUGS (6)
  1. HUMIRA [Suspect]
     Indication: PSORIATIC ARTHROPATHY
     Dates: start: 201303
  2. METHOTREXATE [Concomitant]
     Indication: PSORIASIS
  3. METHOTREXATE [Concomitant]
     Indication: PSORIATIC ARTHROPATHY
  4. BLOOD PRESSURE PILL [Concomitant]
     Indication: BLOOD PRESSURE
  5. ANTIDEPRESSANT [Concomitant]
     Indication: PRODUCT USED FOR UNKNOWN INDICATION
  6. OVER THE COUNTER MEDICATION [Concomitant]
     Indication: DYSPEPSIA

REACTIONS (2)
  - Gallbladder non-functioning [Not Recovered/Not Resolved]
  - Cholelithiasis [Not Recovered/Not Resolved]
